FAERS Safety Report 8302804-1 (Version None)
Quarter: 2012Q2

REPORT INFORMATION
  Report Type: 
  Country: None (occurrence: None)
  Receive Date: 20120420
  Receipt Date: 20120413
  Transmission Date: 20120825
  Serious: Yes (Hospitalization, Other)
  Sender: FDA-Public Use
  Company Number: US-ABBOTT-12P-163-0925610-00

PATIENT
  Sex: Male
  Weight: 86.26 kg

DRUGS (4)
  1. HUMIRA [Suspect]
     Dosage: 1 IN 1 DAY, SINGLE DOSE
  2. HUMIRA [Suspect]
     Indication: CROHN'S DISEASE
     Dosage: 1 IN 1 DAY, SINGLE DOSE
  3. HUMIRA [Suspect]
     Dosage: TWO WEEK AFTER FIRST DOSES, SINGLE DOSE
     Dates: start: 20100101, end: 20100101
  4. HUMIRA [Suspect]
     Dates: end: 20101101

REACTIONS (10)
  - ABDOMINAL ADHESIONS [None]
  - IMPAIRED HEALING [None]
  - CROHN'S DISEASE [None]
  - BOWEL MOVEMENT IRREGULARITY [None]
  - PROCEDURAL COMPLICATION [None]
  - COLITIS [None]
  - COLONIC OBSTRUCTION [None]
  - COLONIC STENOSIS [None]
  - RECTAL HAEMORRHAGE [None]
  - C-REACTIVE PROTEIN INCREASED [None]
